FAERS Safety Report 21895855 (Version 1)
Quarter: 2023Q1

REPORT INFORMATION
  Report Type: Spontaneous
  Country: US (occurrence: US)
  Receive Date: 20230123
  Receipt Date: 20230123
  Transmission Date: 20230418
  Serious: No
  Sender: FDA-Public Use
  Company Number: US-JNJFOC-20230120797

PATIENT
  Age: 8 Decade
  Sex: Male
  Weight: 81.720 kg

DRUGS (1)
  1. BALVERSA [Suspect]
     Active Substance: ERDAFITINIB
     Indication: Transitional cell carcinoma
     Route: 065
     Dates: start: 2022

REACTIONS (6)
  - Onychomadesis [Unknown]
  - Pain [Unknown]
  - Peripheral coldness [Unknown]
  - Drug intolerance [Unknown]
  - Weight decreased [Unknown]
  - Intentional product use issue [Unknown]
